FAERS Safety Report 13224650 (Version 1)
Quarter: 2017Q1

REPORT INFORMATION
  Report Type: Report from Study
  Country: NG (occurrence: NG)
  Receive Date: 20170213
  Receipt Date: 20170213
  Transmission Date: 20170428
  Serious: Yes (Death, Hospitalization, Other)
  Sender: FDA-Public Use
  Company Number: NG-CIPLA LTD.-2017NG01694

PATIENT

DRUGS (3)
  1. VITAMIN C [Suspect]
     Active Substance: ASCORBIC ACID
     Indication: SICKLE CELL ANAEMIA
     Dosage: UNK, DAILY
     Route: 065
  2. ARTESUNATE-MEFLOQUINE [Suspect]
     Active Substance: ARTESUNATE\MEFLOQUINE
     Indication: MALARIA PROPHYLAXIS
     Dosage: UNK, BIMONTHLY, 3 DAYS
     Route: 065
  3. FOLIC ACID. [Suspect]
     Active Substance: FOLIC ACID
     Indication: SICKLE CELL ANAEMIA
     Dosage: UNK, DAILY
     Route: 065

REACTIONS (4)
  - Sepsis [Unknown]
  - Death [Fatal]
  - Sickle cell anaemia with crisis [Unknown]
  - Staphylococcus test positive [None]
